FAERS Safety Report 6184418-5 (Version None)
Quarter: 2009Q2

REPORT INFORMATION
  Report Type: 
  Country: None (occurrence: None)
  Receive Date: 20090508
  Receipt Date: 20090428
  Transmission Date: 20091009
  Serious: Yes (Hospitalization)
  Sender: FDA-Public Use
  Company Number: B0573108A

PATIENT
  Age: 45 Year
  Sex: Male

DRUGS (3)
  1. LAMIVUDINE [Suspect]
     Indication: HIV INFECTION
  2. TENOFOVIR [Suspect]
     Indication: HIV INFECTION
  3. LOPINAVIR AND RITONAVIR [Suspect]
     Indication: HIV INFECTION

REACTIONS (17)
  - BONE MARROW DISORDER [None]
  - CACHEXIA [None]
  - CONDITION AGGRAVATED [None]
  - DIARRHOEA [None]
  - EPISTAXIS [None]
  - GLOMERULONEPHRITIS PROLIFERATIVE [None]
  - HAEMATURIA [None]
  - HEPATOSPLENOMEGALY [None]
  - IMMUNE RECONSTITUTION SYNDROME [None]
  - INCREASED TENDENCY TO BRUISE [None]
  - LEISHMANIASIS [None]
  - LYMPHADENOPATHY [None]
  - OEDEMA PERIPHERAL [None]
  - PANCYTOPENIA [None]
  - PROTEINURIA [None]
  - RENAL FAILURE [None]
  - VISCERAL LEISHMANIASIS [None]
